FAERS Safety Report 5169212-6 (Version None)
Quarter: 2006Q4

REPORT INFORMATION
  Report Type: 
  Country: None (occurrence: None)
  Receive Date: 20061204
  Receipt Date: 20061125
  Transmission Date: 20070319
  Serious: Yes (Hospitalization, Other)
  Sender: FDA-Public Use
  Company Number: 2006125614

PATIENT
  Age: 46 Year
  Sex: Male

DRUGS (10)
  1. LYRICA [Suspect]
     Indication: BACK PAIN
     Dosage: 600 MG (300 MG, 2 IN 1 D)
     Dates: end: 20060929
  2. LYRICA [Suspect]
     Indication: POST LAMINECTOMY SYNDROME
     Dosage: 600 MG (300 MG, 2 IN 1 D)
     Dates: end: 20060929
  3. METHADONE HCL [Suspect]
     Indication: POST LAMINECTOMY SYNDROME
     Dosage: 20 MG (10 MG, 2 IN 1 D)
     Dates: start: 20060925, end: 20060929
  4. MORPHINE [Suspect]
     Dates: start: 20061001
  5. NOVOLIN N [Concomitant]
  6. ATIVAN [Suspect]
  7. EFFEXOR [Concomitant]
  8. TYLENOL [Concomitant]
  9. ZOSYN [Concomitant]
  10. AMBIEN [Concomitant]

REACTIONS (7)
  - ABNORMAL BEHAVIOUR [None]
  - FOAMING AT MOUTH [None]
  - IRRITABILITY [None]
  - LOSS OF CONSCIOUSNESS [None]
  - MENTAL STATUS CHANGES [None]
  - SALIVARY HYPERSECRETION [None]
  - SOMNOLENCE [None]
